FAERS Safety Report 13601146 (Version 1)
Quarter: 2017Q2

REPORT INFORMATION
  Report Type: Spontaneous
  Country: US (occurrence: US)
  Receive Date: 20170601
  Receipt Date: 20170601
  Transmission Date: 20170830
  Serious: No
  Sender: FDA-Public Use
  Company Number: US-ASTRAZENECA-2017SE56354

PATIENT
  Sex: Male

DRUGS (2)
  1. BYETTA [Concomitant]
     Active Substance: EXENATIDE
     Route: 065
  2. BYDUREON [Suspect]
     Active Substance: EXENATIDE
     Route: 065

REACTIONS (3)
  - Product use issue [Unknown]
  - Injection site vesicles [Unknown]
  - Injection site dryness [Not Recovered/Not Resolved]
